FAERS Safety Report 8392941-8 (Version None)
Quarter: 2012Q1

REPORT INFORMATION
  Report Type: 
  Country: None (occurrence: None)
  Receive Date: 20120323
  Receipt Date: 20110610
  Transmission Date: 20120608
  Serious: Yes (Hospitalization)
  Sender: FDA-Public Use
  Company Number: 163-21880-11030379

PATIENT
  Age: 54 Year
  Sex: Female
  Weight: 75.4 kg

DRUGS (14)
  1. PEPCID [Concomitant]
  2. PERCOCET [Concomitant]
  3. XANAX [Concomitant]
  4. PLATELETS (PLATELETS) [Concomitant]
  5. AMBIEN [Concomitant]
  6. RITUXAN [Concomitant]
  7. REVLIMID [Suspect]
     Indication: MULTIPLE MYELOMA
     Dosage: SEE IMAGE
     Route: 048
     Dates: start: 20110101
  8. REVLIMID [Suspect]
     Indication: MULTIPLE MYELOMA
     Dosage: SEE IMAGE
     Route: 048
     Dates: start: 20101201
  9. REVLIMID [Suspect]
     Indication: MULTIPLE MYELOMA
     Dosage: SEE IMAGE
     Route: 048
     Dates: start: 20110101, end: 20110101
  10. REVLIMID [Suspect]
     Indication: MULTIPLE MYELOMA
     Dosage: SEE IMAGE
     Route: 048
     Dates: start: 20110101, end: 20110101
  11. REVLIMID [Suspect]
     Indication: MULTIPLE MYELOMA
     Dosage: SEE IMAGE
     Route: 048
     Dates: start: 20100901, end: 20100101
  12. ASPIRIN [Concomitant]
  13. BLOOD (BLOOD AND RELATED PRODUCTS) [Concomitant]
  14. SOMA [Concomitant]

REACTIONS (4)
  - FEBRILE NEUTROPENIA [None]
  - PANCYTOPENIA [None]
  - WHITE BLOOD CELL COUNT DECREASED [None]
  - PLATELET COUNT DECREASED [None]
